FAERS Safety Report 17629959 (Version 1)
Quarter: 2020Q2

REPORT INFORMATION
  Report Type: Spontaneous
  Country: JP (occurrence: JP)
  Receive Date: 20200406
  Receipt Date: 20200406
  Transmission Date: 20200713
  Serious: Yes (Other)
  Sender: FDA-Public Use
  Company Number: JP-PFIZER INC-2019417449

PATIENT
  Age: 58 Year
  Sex: Female

DRUGS (1)
  1. LORBRENA [Suspect]
     Active Substance: LORLATINIB
     Indication: LUNG NEOPLASM MALIGNANT
     Dosage: 100 MG, DAILY
     Route: 048

REACTIONS (11)
  - Hemiparesis [Recovered/Resolved]
  - Dysarthria [Unknown]
  - Hyperlipidaemia [Recovering/Resolving]
  - Neuropathy peripheral [Recovered/Resolved]
  - Neoplasm progression [Recovered/Resolved]
  - Parkinsonism [Recovered/Resolved]
  - Arthralgia [Recovered/Resolved]
  - Oedema [Recovered/Resolved]
  - Hyperreflexia [Recovered/Resolved]
  - Alopecia [Unknown]
  - Musculoskeletal stiffness [Recovered/Resolved]
